FAERS Safety Report 12983781 (Version 5)
Quarter: 2020Q2

REPORT INFORMATION
  Report Type: Report from Study
  Country: FI (occurrence: GB)
  Receive Date: 20161129
  Receipt Date: 20200429
  Transmission Date: 20200713
  Serious: Yes (Life-Threatening, Hospitalization, Other)
  Sender: FDA-Public Use
  Company Number: GB-SA-2016SA213435

PATIENT
  Age: 28 Year
  Sex: Male
  Weight: 118 kg

DRUGS (18)
  1. DOXYCYCLINE. [Concomitant]
     Active Substance: DOXYCYCLINE
     Dosage: UNK
     Route: 041
     Dates: start: 2016, end: 2016
  2. FOLIC ACID. [Concomitant]
     Active Substance: FOLIC ACID
     Dosage: 5 MG,UNK
     Route: 048
     Dates: start: 2016
  3. PALIFERMIN [Suspect]
     Active Substance: PALIFERMIN
     Indication: MULTIPLE SCLEROSIS
     Dosage: 63.06 MG,UNK
     Route: 041
     Dates: start: 20131113, end: 20140220
  4. ALEMTUZUMAB [Suspect]
     Active Substance: ALEMTUZUMAB
     Indication: RELAPSING-REMITTING MULTIPLE SCLEROSIS
     Dosage: 12 MG,QD
     Route: 041
     Dates: start: 20131118, end: 20131122
  5. BUMETANIDE. [Concomitant]
     Active Substance: BUMETANIDE
     Indication: OEDEMA PERIPHERAL
     Dosage: 2 MG,UNK
     Route: 048
     Dates: start: 2016
  6. HYDROCODONE [Concomitant]
     Active Substance: HYDROCODONE
     Dosage: 30 MG,UNK
     Route: 048
     Dates: start: 2016
  7. SALBUTAMOL [Concomitant]
     Active Substance: ALBUTEROL
     Dosage: 100 UG,UNK
     Route: 055
  8. DEXAMETHASONE. [Concomitant]
     Active Substance: DEXAMETHASONE
     Dosage: UNK
     Route: 041
     Dates: start: 2016
  9. PREDNISOLONE. [Concomitant]
     Active Substance: PREDNISOLONE
     Dosage: UNK
     Route: 048
     Dates: start: 2016
  10. THYROXIN [Concomitant]
     Active Substance: LEVOTHYROXINE
     Dosage: 50 UG,UNK
     Route: 048
     Dates: start: 2016
  11. ALEMTUZUMAB [Suspect]
     Active Substance: ALEMTUZUMAB
     Dosage: 12 MG,QD
     Route: 041
     Dates: start: 20141201, end: 20141210
  12. FLUDROCORTISONE [Concomitant]
     Active Substance: FLUDROCORTISONE
     Dosage: UNK
     Route: 048
     Dates: start: 2016
  13. CALCIUM CARBONATE. [Concomitant]
     Active Substance: CALCIUM CARBONATE
     Indication: PROPHYLAXIS
     Dosage: 1 DF,UNK
     Route: 048
     Dates: start: 20161025
  14. COTRIMOXAZOLE [Concomitant]
     Active Substance: SULFAMETHOXAZOLE\TRIMETHOPRIM
     Dosage: 960 MG,UNK
     Dates: start: 20161014
  15. OMEPRAZOLE. [Concomitant]
     Active Substance: OMEPRAZOLE
     Dosage: 40 MG,QD
     Route: 048
     Dates: start: 2016
  16. PALIFERMIN [Suspect]
     Active Substance: PALIFERMIN
     Dosage: 62.7 MG,UNK
     Route: 041
     Dates: start: 20141126, end: 20141210
  17. AZITHROMYCIN ANHYDROUS. [Concomitant]
     Active Substance: AZITHROMYCIN ANHYDROUS
     Dosage: UNK
     Route: 041
     Dates: start: 2016, end: 2016
  18. ACICLOVIR [Concomitant]
     Active Substance: ACYCLOVIR
     Indication: PROPHYLAXIS
     Dosage: 200 MG,Q6H
     Route: 048
     Dates: start: 20160911

REACTIONS (10)
  - Haemorrhage [Recovering/Resolving]
  - Blood albumin decreased [Recovering/Resolving]
  - Pyrexia [Recovered/Resolved]
  - Abdominal pain upper [Recovered/Resolved]
  - Acquired haemophilia [Recovering/Resolving]
  - Haemorrhage [Recovered/Resolved]
  - Haemophagocytic lymphohistiocytosis [Recovered/Resolved]
  - Dehydration [Recovering/Resolving]
  - Renal failure [Not Recovered/Not Resolved]
  - Inflammatory marker increased [Recovered/Resolved]

NARRATIVE: CASE EVENT DATE: 20160521
